FAERS Safety Report 14849755 (Version 2)
Quarter: 2018Q2

REPORT INFORMATION
  Report Type: Spontaneous
  Country: CA (occurrence: CA)
  Receive Date: 20180504
  Receipt Date: 20180514
  Transmission Date: 20180711
  Serious: Yes (Hospitalization, Other)
  Sender: FDA-Public Use
  Company Number: CA-PFIZER INC-2018185660

PATIENT
  Age: 47 Year
  Sex: Female

DRUGS (9)
  1. METHOTREXATE. [Concomitant]
     Active Substance: METHOTREXATE
     Dosage: 25 MG, WEEKLY
     Route: 058
  2. LORAZEPAM. [Concomitant]
     Active Substance: LORAZEPAM
     Indication: SLEEP DISORDER
     Dosage: 1 MG, 1X/DAY, AT BED TIME
  3. CITALOPRAM [Concomitant]
     Active Substance: CITALOPRAM HYDROBROMIDE
     Dosage: 10 MG, 1X/DAY
  4. ARAVA [Concomitant]
     Active Substance: LEFLUNOMIDE
  5. SULFASALAZINE. [Suspect]
     Active Substance: SULFASALAZINE
  6. PLAQUENIL [Concomitant]
     Active Substance: HYDROXYCHLOROQUINE SULFATE
  7. PREDNISONE. [Concomitant]
     Active Substance: PREDNISONE
     Dosage: 10 MG, 1X/DAY
  8. PANTOLOC /01263201/ [Concomitant]
     Active Substance: PANTOPRAZOLE SODIUM
     Indication: GASTROINTESTINAL DISORDER
     Dosage: 40 MG, 2X/DAY
  9. CELEBREX [Concomitant]
     Active Substance: CELECOXIB
     Dosage: 200 MG, 2X/DAY

REACTIONS (5)
  - Gallbladder disorder [Unknown]
  - Pancreatitis [Unknown]
  - Drug ineffective [Unknown]
  - Abdominal discomfort [Unknown]
  - Arthralgia [Unknown]
